FAERS Safety Report 10776597 (Version 1)
Quarter: 2015Q1

REPORT INFORMATION
  Report Type: Spontaneous
  Country: US (occurrence: None)
  Receive Date: 20150205
  Receipt Date: 20150205
  Transmission Date: 20150721
  Serious: No
  Sender: FDA-Public Use
  Company Number: None

PATIENT
  Age: 60 Year
  Sex: Female
  Weight: 69.4 kg

DRUGS (1)
  1. SIMVASTATIN 10MG [Suspect]
     Active Substance: SIMVASTATIN
     Indication: BLOOD CHOLESTEROL INCREASED
     Dosage: 1 PILL ONCE DAILY
     Route: 048
     Dates: start: 20150106, end: 20150131

REACTIONS (6)
  - Myalgia [None]
  - Memory impairment [None]
  - Arthralgia [None]
  - Dry mouth [None]
  - Tenderness [None]
  - Confusional state [None]

NARRATIVE: CASE EVENT DATE: 20150105
